FAERS Safety Report 9789656 (Version 2)
Quarter: 2014Q3

REPORT INFORMATION
  Report Type: Spontaneous
  Country: US (occurrence: US)
  Receive Date: 20131231
  Receipt Date: 20140721
  Transmission Date: 20150326
  Serious: Yes (Hospitalization)
  Sender: FDA-Public Use
  Company Number: US-BAYER-2013-158614

PATIENT
  Age: 37 Year
  Sex: Female
  Weight: 72.56 kg

DRUGS (3)
  1. MIRENA [Suspect]
     Active Substance: LEVONORGESTREL
     Indication: CONTRACEPTION
     Dosage: 20 MCG/24HR, CONT
     Route: 015
     Dates: start: 20100114, end: 20100118
  2. FLAGYL [Concomitant]
     Active Substance: METRONIDAZOLE\METRONIDAZOLE HYDROCHLORIDE
     Dosage: 500 MG, BID 7 DAYS
  3. LORAZEPAM. [Concomitant]
     Active Substance: LORAZEPAM

REACTIONS (7)
  - Depression [None]
  - Uterine perforation [Not Recovered/Not Resolved]
  - Device dislocation [Not Recovered/Not Resolved]
  - Medical device pain [Not Recovered/Not Resolved]
  - Pelvic pain [Not Recovered/Not Resolved]
  - Injury [Not Recovered/Not Resolved]
  - Medical device discomfort [Not Recovered/Not Resolved]

NARRATIVE: CASE EVENT DATE: 201001
